FAERS Safety Report 4544311-8 (Version None)
Quarter: 2005Q1

REPORT INFORMATION
  Report Type: 
  Country: None (occurrence: None)
  Receive Date: 20050104
  Receipt Date: 20041027
  Transmission Date: 20050727
  Serious: Yes (Hospitalization, Other)
  Sender: FDA-Public Use
  Company Number: US-MERCK-0410USA04183

PATIENT
  Age: 85 Year
  Sex: Female
  Weight: 55 kg

DRUGS (8)
  1. FOSAMAX [Suspect]
     Indication: OSTEITIS DEFORMANS
     Route: 048
     Dates: start: 19950101
  2. LISINOPRIL [Concomitant]
     Route: 065
  3. APAP TAB [Concomitant]
     Route: 065
  4. ULTRACET [Concomitant]
     Route: 065
  5. METOPROLOL [Concomitant]
     Route: 065
  6. CLONIDINE [Concomitant]
     Route: 065
  7. XALATAN [Concomitant]
     Route: 047
  8. GASTROINTESTINAL PREPARATIONS (UNSPECIFIED) [Concomitant]
     Route: 065

REACTIONS (9)
  - CEREBROVASCULAR ACCIDENT [None]
  - DIZZINESS [None]
  - DYSPHAGIA [None]
  - ECCHYMOSIS [None]
  - FALL [None]
  - HERPES ZOSTER [None]
  - HYDROCEPHALUS [None]
  - SYNCOPE [None]
  - UPPER GASTROINTESTINAL HAEMORRHAGE [None]
